FAERS Safety Report 23775487 (Version 1)
Quarter: 2024Q2

REPORT INFORMATION
  Report Type: Spontaneous
  Country: KW (occurrence: KW)
  Receive Date: 20240423
  Receipt Date: 20240423
  Transmission Date: 20240715
  Serious: Yes (Other)
  Sender: FDA-Public Use
  Company Number: KW-TAKEDA-2024TUS037013

PATIENT

DRUGS (1)
  1. ADCETRIS [Suspect]
     Active Substance: BRENTUXIMAB VEDOTIN
     Indication: Cutaneous T-cell lymphoma refractory
     Dosage: 1.8 MILLIGRAM/KILOGRAM, Q3WEEKS
     Route: 065

REACTIONS (1)
  - COVID-19 pneumonia [Unknown]
